FAERS Safety Report 10308906 (Version 4)
Quarter: 2015Q1

REPORT INFORMATION
  Report Type: Spontaneous
  Country: US (occurrence: US)
  Receive Date: 20140716
  Receipt Date: 20150106
  Transmission Date: 20150720
  Serious: Yes (Death, Other)
  Sender: FDA-Public Use
  Company Number: US-MERCK-1407USA006793

PATIENT
  Sex: Male
  Weight: 101.13 kg

DRUGS (2)
  1. JANUVIA [Suspect]
     Active Substance: SITAGLIPTIN PHOSPHATE
     Indication: TYPE 2 DIABETES MELLITUS
     Dosage: 100 MG, QD
     Route: 048
     Dates: start: 20081104, end: 20110930
  2. VICTOZA [Suspect]
     Active Substance: LIRAGLUTIDE
     Dosage: 1.8 MG, QD
     Dates: start: 20100830, end: 20110425

REACTIONS (19)
  - Metastases to lung [Unknown]
  - Medical device complication [Unknown]
  - Drug tolerance decreased [Unknown]
  - Blood creatinine increased [Unknown]
  - Pancreatic carcinoma metastatic [Fatal]
  - Coronary artery disease [Unknown]
  - Osteoarthritis [Unknown]
  - Metastases to liver [Unknown]
  - Pleural fibrosis [Unknown]
  - Aortic calcification [Unknown]
  - Night sweats [Unknown]
  - Drug ineffective [Unknown]
  - Cardiac arrest [Fatal]
  - Cytopenia [Unknown]
  - Toxicity to various agents [Unknown]
  - Knee operation [Unknown]
  - Umbilical hernia [Unknown]
  - Back pain [Not Recovered/Not Resolved]
  - Constipation [Unknown]

NARRATIVE: CASE EVENT DATE: 2010
